FAERS Safety Report 11511986 (Version 1)
Quarter: 2015Q3

REPORT INFORMATION
  Report Type: Spontaneous
  Country: US (occurrence: US)
  Receive Date: 20150916
  Receipt Date: 20150916
  Transmission Date: 20151125
  Serious: No
  Sender: FDA-Public Use
  Company Number: US-TEVA-569594USA

PATIENT
  Sex: Female

DRUGS (1)
  1. METFORMIN W/PIOGLITAZONE [Suspect]
     Active Substance: METFORMIN HYDROCHLORIDE\PIOGLITAZONE HYDROCHLORIDE
     Dosage: 15 MG / 850 MG
     Route: 065

REACTIONS (1)
  - Drug effect decreased [Unknown]
